FAERS Safety Report 5128269-9 (Version None)
Quarter: 2006Q4

REPORT INFORMATION
  Report Type: 
  Country: None (occurrence: None)
  Receive Date: 20061011
  Receipt Date: 20060922
  Transmission Date: 20070319
  Serious: Yes (Hospitalization, Other)
  Sender: FDA-Public Use
  Company Number: US200608004893

PATIENT
  Sex: Female

DRUGS (6)
  1. HUMALOG [Suspect]
     Indication: DIABETES MELLITUS NON-INSULIN-DEPENDENT
  2. HUMALOG [Suspect]
     Indication: DIABETES MELLITUS NON-INSULIN-DEPENDENT
  3. LASIX [Concomitant]
  4. XANAX [Concomitant]
  5. ALPRAZOLAM [Concomitant]
  6. OXYGEN (OXYGEN) [Concomitant]

REACTIONS (15)
  - ACCIDENTAL OVERDOSE [None]
  - ASTHENIA [None]
  - BACK PAIN [None]
  - BLOOD GLUCOSE DECREASED [None]
  - BLOOD GLUCOSE INCREASED [None]
  - FEELING ABNORMAL [None]
  - HYPOACUSIS [None]
  - ILL-DEFINED DISORDER [None]
  - LOSS OF CONSCIOUSNESS [None]
  - MALAISE [None]
  - MEDICATION ERROR [None]
  - PHARMACEUTICAL PRODUCT COMPLAINT [None]
  - POLYURIA [None]
  - RESTLESSNESS [None]
  - UROSEPSIS [None]
